FAERS Safety Report 4354127-3 (Version None)
Quarter: 2004Q2

REPORT INFORMATION
  Report Type: 
  Country: None (occurrence: None)
  Receive Date: 20040506
  Receipt Date: 20040428
  Transmission Date: 20050107
  Serious: Yes (Hospitalization)
  Sender: FDA-Public Use
  Company Number: JP-BRISTOL-MYERS SQUIBB COMPANY-12575452

PATIENT
  Age: 79 Year
  Sex: Male

DRUGS (1)
  1. HYDREA [Suspect]
     Indication: CHRONIC MYELOID LEUKAEMIA
     Route: 048
     Dates: start: 19990101, end: 20020101

REACTIONS (2)
  - HYPONATRAEMIA [None]
  - RENAL DISORDER [None]
